FAERS Safety Report 6380196-5 (Version None)
Quarter: 2009Q3

REPORT INFORMATION
  Report Type: 
  Country: None (occurrence: None)
  Receive Date: 20090929
  Receipt Date: 20090917
  Transmission Date: 20100115
  Serious: Yes (Hospitalization)
  Sender: FDA-Public Use
  Company Number: US-JNJFOC-20090905842

PATIENT
  Sex: Female
  Weight: 65.77 kg

DRUGS (4)
  1. REMICADE [Suspect]
     Indication: CROHN'S DISEASE
     Route: 042
  2. PREDNISONE TAB [Concomitant]
     Indication: CROHN'S DISEASE
  3. OXYCODONE HCL [Concomitant]
     Indication: PAIN
  4. PHENYTOIN [Concomitant]
     Indication: CONVULSION

REACTIONS (3)
  - BRAIN OEDEMA [None]
  - BRAIN OPERATION [None]
  - CSF SHUNT OPERATION [None]
